FAERS Safety Report 9383438 (Version 1)
Quarter: 2013Q3

REPORT INFORMATION
  Report Type: Spontaneous
  Country: FR (occurrence: FR)
  Receive Date: 20130704
  Receipt Date: 20130704
  Transmission Date: 20140515
  Serious: Yes (Death)
  Sender: FDA-Public Use
  Company Number: FR-009507513-1306FRA013640

PATIENT
  Age: 69 Year
  Sex: Male

DRUGS (6)
  1. NOROXINE [Suspect]
     Indication: PERITONITIS
     Dosage: 400 MG, QD
     Route: 048
     Dates: start: 20130507, end: 20130509
  2. SEROPLEX [Suspect]
     Indication: DEPRESSION
     Dosage: 10 MG, QD
     Route: 048
     Dates: start: 20130514, end: 20130528
  3. VIREAD [Suspect]
     Indication: HEPATITIS B
     Dosage: 245 MG, QD
     Route: 048
     Dates: start: 20130508, end: 20130528
  4. ALDACTONE TABLETS [Suspect]
     Indication: ASCITES
     Dosage: 25 MG, QD
     Route: 048
     Dates: start: 20130507, end: 20130518
  5. EUPANTOL [Suspect]
     Dosage: 40 MG, BID
     Route: 042
     Dates: start: 20130516, end: 20130606
  6. CEFTRIAXONE SODIUM [Suspect]
     Dosage: UNK
     Route: 042
     Dates: start: 20130516, end: 20130606

REACTIONS (1)
  - Prothrombin level decreased [Fatal]
